FAERS Safety Report 8184548-2 (Version None)
Quarter: 2012Q1

REPORT INFORMATION
  Report Type: 
  Country: None (occurrence: None)
  Receive Date: 20120301
  Receipt Date: 20120216
  Transmission Date: 20120608
  Serious: Yes (Other)
  Sender: FDA-Public Use
  Company Number: JPI-P-018742

PATIENT
  Age: 66 Year
  Sex: Female
  Weight: 113.3993 kg

DRUGS (12)
  1. PIOGLITAZONE [Concomitant]
  2. COLESEVELAM HYDROCHLORIDE [Concomitant]
  3. PROPRANOLOL [Concomitant]
  4. XYREM [Suspect]
     Indication: CATAPLEXY
     Dosage: 3 GM (1.5 GM,2 IN 1 D),ORAL,9 GM (4.5 GM,2 IN 1 D),ORAL, 9 GM (4.5 GM,RESTARTED AFTER SURGERY),ORAL
     Route: 048
     Dates: start: 20110503
  5. XYREM [Suspect]
     Indication: CATAPLEXY
     Dosage: 3 GM (1.5 GM,2 IN 1 D),ORAL,9 GM (4.5 GM,2 IN 1 D),ORAL, 9 GM (4.5 GM,RESTARTED AFTER SURGERY),ORAL
     Route: 048
     Dates: start: 20120201
  6. XYREM [Suspect]
     Indication: CATAPLEXY
     Dosage: 3 GM (1.5 GM,2 IN 1 D),ORAL,9 GM (4.5 GM,2 IN 1 D),ORAL, 9 GM (4.5 GM,RESTARTED AFTER SURGERY),ORAL
     Route: 048
     Dates: start: 20100506
  7. GLIMEPIRIDE [Concomitant]
  8. MODAFINIL [Concomitant]
  9. VENLAFAXINE [Concomitant]
  10. ASPIRIN [Concomitant]
  11. RAMIPRIL [Concomitant]
  12. LEVOTHYROXINE SODIUM [Concomitant]

REACTIONS (3)
  - FEELING ABNORMAL [None]
  - HEPATIC CIRRHOSIS [None]
  - EYE MOVEMENT DISORDER [None]
